FAERS Safety Report 7299933-0 (Version None)
Quarter: 2011Q1

REPORT INFORMATION
  Report Type: 
  Country: None (occurrence: None)
  Receive Date: 20110217
  Receipt Date: 20110207
  Transmission Date: 20110831
  Serious: Yes (Hospitalization)
  Sender: FDA-Public Use
  Company Number: US-BAYER-201032438NA

PATIENT
  Sex: Female
  Weight: 118 kg

DRUGS (6)
  1. NSAID'S [Concomitant]
  2. OCELLA [Suspect]
     Indication: PRODUCT USED FOR UNKNOWN INDICATION
     Route: 048
     Dates: start: 20040801, end: 20090301
  3. OCELLA [Suspect]
     Route: 048
     Dates: start: 20090301, end: 20090901
  4. YAZ [Suspect]
     Route: 048
  5. YASMIN [Suspect]
     Route: 048
     Dates: start: 20090301, end: 20090901
  6. YASMIN [Suspect]
     Route: 048
     Dates: start: 20040801, end: 20090301

REACTIONS (2)
  - OEDEMA PERIPHERAL [None]
  - DEEP VEIN THROMBOSIS [None]
